FAERS Safety Report 11637129 (Version 1)
Quarter: 2015Q4

REPORT INFORMATION
  Report Type: Report from Study
  Country: US (occurrence: US)
  Receive Date: 20151016
  Receipt Date: 20151016
  Transmission Date: 20160304
  Serious: Yes (Hospitalization)
  Sender: FDA-Public Use
  Company Number: US-ACTELION-A-NJ2015-125439

PATIENT
  Age: 32 Year
  Sex: Female

DRUGS (3)
  1. XARELTO [Concomitant]
     Active Substance: RIVAROXABAN
  2. MACITENTAN [Suspect]
     Active Substance: MACITENTAN
     Indication: PULMONARY ARTERIAL HYPERTENSION
     Dosage: 10 MG, QD
     Route: 048
     Dates: start: 20150629
  3. TYVASO [Concomitant]
     Active Substance: TREPROSTINIL

REACTIONS (2)
  - Cardiac neoplasm unspecified [Unknown]
  - Cardiac operation [Unknown]

NARRATIVE: CASE EVENT DATE: 20150928
